FAERS Safety Report 25432671 (Version 1)
Quarter: 2025Q2

REPORT INFORMATION
  Report Type: Report from Study
  Country: ES (occurrence: ES)
  Receive Date: 20250613
  Receipt Date: 20250613
  Transmission Date: 20250717
  Serious: Yes (Hospitalization)
  Sender: RANBAXY
  Company Number: ES-SUN PHARMACEUTICAL INDUSTRIES LTD-2025RR-511520

PATIENT
  Age: 20 Year
  Sex: Female
  Weight: 95.5 kg

DRUGS (30)
  1. TEMOZOLOMIDE [Suspect]
     Active Substance: TEMOZOLOMIDE
     Indication: Perivascular epithelioid cell tumour
     Route: 048
     Dates: start: 20240301
  2. TEMOZOLOMIDE [Suspect]
     Active Substance: TEMOZOLOMIDE
     Route: 048
     Dates: start: 20240703, end: 20250323
  3. ABEMACICLIB [Suspect]
     Active Substance: ABEMACICLIB
     Indication: Perivascular epithelioid cell tumour
     Dosage: 150 MILLIGRAM, BID
     Route: 048
     Dates: start: 20230915, end: 20231001
  4. ABEMACICLIB [Suspect]
     Active Substance: ABEMACICLIB
     Dosage: 150 MILLIGRAM, BID
     Route: 048
     Dates: start: 20231002, end: 20231005
  5. ABEMACICLIB [Suspect]
     Active Substance: ABEMACICLIB
     Dosage: 150 MILLIGRAM, BID
     Route: 048
     Dates: start: 20231005, end: 20231006
  6. ABEMACICLIB [Suspect]
     Active Substance: ABEMACICLIB
     Dosage: 150 MILLIGRAM, BID
     Route: 048
     Dates: start: 20231007, end: 20231017
  7. ABEMACICLIB [Suspect]
     Active Substance: ABEMACICLIB
     Dosage: 150 MILLIGRAM, BID
     Route: 048
     Dates: start: 20231113, end: 20231129
  8. ABEMACICLIB [Suspect]
     Active Substance: ABEMACICLIB
     Dosage: 150 MILLIGRAM, BID
     Route: 048
     Dates: start: 20231130, end: 20231204
  9. ABEMACICLIB [Suspect]
     Active Substance: ABEMACICLIB
     Dosage: 150 MILLIGRAM, BID
     Route: 048
     Dates: start: 20231204, end: 20231216
  10. ABEMACICLIB [Suspect]
     Active Substance: ABEMACICLIB
     Dosage: 150 MILLIGRAM, BID
     Route: 048
     Dates: start: 20231218, end: 20240104
  11. ABEMACICLIB [Suspect]
     Active Substance: ABEMACICLIB
     Dosage: 150 MILLIGRAM, BID
     Route: 048
     Dates: start: 20240105, end: 20240106
  12. ABEMACICLIB [Suspect]
     Active Substance: ABEMACICLIB
     Dosage: 150 MILLIGRAM, BID
     Route: 048
     Dates: start: 20240107, end: 20240109
  13. ABEMACICLIB [Suspect]
     Active Substance: ABEMACICLIB
     Dosage: 150 MILLIGRAM, BID
     Route: 048
     Dates: start: 20240110, end: 20240123
  14. ABEMACICLIB [Suspect]
     Active Substance: ABEMACICLIB
     Dosage: 150 MILLIGRAM, BID
     Route: 048
     Dates: start: 20240124, end: 20240128
  15. ABEMACICLIB [Suspect]
     Active Substance: ABEMACICLIB
     Dosage: 150 MILLIGRAM, BID
     Route: 048
     Dates: start: 20240129, end: 20240210
  16. ABEMACICLIB [Suspect]
     Active Substance: ABEMACICLIB
     Dosage: 150 MILLIGRAM, BID
     Route: 048
     Dates: start: 20240210, end: 20240213
  17. ABEMACICLIB [Suspect]
     Active Substance: ABEMACICLIB
     Dosage: 150 MILLIGRAM, BID
     Route: 048
     Dates: start: 20240213, end: 20240214
  18. ABEMACICLIB [Suspect]
     Active Substance: ABEMACICLIB
     Dosage: 150 MILLIGRAM, BID
     Route: 048
     Dates: start: 20240214, end: 20240216
  19. ABEMACICLIB [Suspect]
     Active Substance: ABEMACICLIB
     Dosage: 150 MILLIGRAM, BID
     Route: 048
     Dates: start: 20240216, end: 20240229
  20. ABEMACICLIB [Suspect]
     Active Substance: ABEMACICLIB
     Dosage: 100 MILLIGRAM, BID
     Route: 048
     Dates: start: 20240301, end: 20240327
  21. ABEMACICLIB [Suspect]
     Active Substance: ABEMACICLIB
     Dosage: 100 MILLIGRAM, BID
     Route: 048
     Dates: start: 20240327, end: 20240408
  22. ABEMACICLIB [Suspect]
     Active Substance: ABEMACICLIB
     Dosage: 100 MILLIGRAM, BID
     Route: 048
     Dates: start: 20240408
  23. ABEMACICLIB [Suspect]
     Active Substance: ABEMACICLIB
     Dosage: UNK, BID
     Route: 048
     Dates: start: 20240703
  24. ONDANSETRON [Concomitant]
     Active Substance: ONDANSETRON
     Indication: Prophylaxis
     Route: 065
     Dates: start: 202212
  25. METOCLOPRAMIDE [Concomitant]
     Active Substance: METOCLOPRAMIDE
     Indication: Vomiting
     Route: 065
     Dates: start: 20231119
  26. ACETAMINOPHEN [Concomitant]
     Active Substance: ACETAMINOPHEN
     Indication: Musculoskeletal chest pain
     Dates: start: 20250325
  27. ACETAMINOPHEN [Concomitant]
     Active Substance: ACETAMINOPHEN
     Indication: Flank pain
  28. TRAMADOL [Concomitant]
     Active Substance: TRAMADOL
     Indication: Musculoskeletal chest pain
     Route: 065
     Dates: start: 20250325
  29. TRAMADOL [Concomitant]
     Active Substance: TRAMADOL
     Indication: Flank pain
  30. IBUPROFEN [Concomitant]
     Active Substance: IBUPROFEN
     Indication: Flank pain
     Route: 065
     Dates: start: 20250325

REACTIONS (1)
  - Musculoskeletal chest pain [Recovered/Resolved]
